FAERS Safety Report 18392683 (Version 1)
Quarter: 2020Q4

REPORT INFORMATION
  Report Type: Spontaneous
  Country: NL (occurrence: ES)
  Receive Date: 20201016
  Receipt Date: 20201016
  Transmission Date: 20210114
  Serious: Yes (Death, Hospitalization)
  Sender: FDA-Public Use
  Company Number: ES-FRESENIUS KABI-FK202010597

PATIENT
  Age: 72 Year
  Sex: Female

DRUGS (4)
  1. LINEZOLID (MANUFACTURER UNKNOWN) [Suspect]
     Active Substance: LINEZOLID
     Indication: INFECTIVE EXACERBATION OF BRONCHIECTASIS
     Dosage: 600 MG DAILY
     Route: 042
     Dates: start: 20200702, end: 20200707
  2. CEFTRIAXON (MANUFACTURER UNKNOWN) [Suspect]
     Active Substance: CEFTRIAXONE
     Indication: INFECTIVE EXACERBATION OF BRONCHIECTASIS
     Dosage: 2 G DAILY
     Route: 042
     Dates: start: 20200628, end: 20200701
  3. MEROPENEM (MANUFACTURER UNKNOWN) [Suspect]
     Active Substance: MEROPENEM
     Indication: INFECTIVE EXACERBATION OF BRONCHIECTASIS
     Dosage: 1G/12H
     Route: 042
     Dates: start: 20200701, end: 20200707
  4. AZITHROMYCIN ANHYDROUS. [Suspect]
     Active Substance: AZITHROMYCIN ANHYDROUS
     Indication: INFECTIVE EXACERBATION OF BRONCHIECTASIS
     Dosage: 500 MG DAILY
     Route: 048
     Dates: start: 20200629, end: 20200701

REACTIONS (3)
  - Acute kidney injury [Fatal]
  - Diarrhoea [Fatal]
  - Septic shock [Fatal]

NARRATIVE: CASE EVENT DATE: 20200707
